FAERS Safety Report 11047331 (Version 2)
Quarter: 2016Q2

REPORT INFORMATION
  Report Type: Report from Study
  Country: US (occurrence: US)
  Receive Date: 20150420
  Receipt Date: 20160404
  Transmission Date: 20160815
  Serious: Yes (Other)
  Sender: FDA-Public Use
  Company Number: US-SA-2015SA045531

PATIENT
  Age: 67 Year
  Sex: Female

DRUGS (1)
  1. LEMTRADA [Suspect]
     Active Substance: ALEMTUZUMAB
     Indication: MULTIPLE SCLEROSIS
     Route: 042
     Dates: start: 20150323, end: 20150327

REACTIONS (6)
  - Hypothyroidism [Unknown]
  - Malaise [Not Recovered/Not Resolved]
  - Renal failure [Unknown]
  - Memory impairment [Unknown]
  - Sweat gland disorder [Recovered/Resolved]
  - Blood urine present [Unknown]

NARRATIVE: CASE EVENT DATE: 201503
